FAERS Safety Report 5013381-5 (Version None)
Quarter: 2006Q2

REPORT INFORMATION
  Report Type: 
  Country: None (occurrence: None)
  Receive Date: 20060530
  Receipt Date: 20060426
  Transmission Date: 20061013
  Serious: No
  Sender: FDA-Public Use
  Company Number: US-GLAXOSMITHKLINE-A0603365A

PATIENT
  Sex: Female

DRUGS (4)
  1. WELLBUTRIN XL [Suspect]
     Indication: FATIGUE
     Dosage: 150MG PER DAY
     Route: 048
     Dates: end: 20060419
  2. METHOTREXATE [Concomitant]
  3. ENBREL [Concomitant]
  4. MOBIC [Concomitant]

REACTIONS (1)
  - CONSTIPATION [None]
